FAERS Safety Report 24056725 (Version 3)
Quarter: 2025Q3

REPORT INFORMATION
  Report Type: Report from Study
  Country: US (occurrence: US)
  Receive Date: 20240705
  Receipt Date: 20250916
  Transmission Date: 20251020
  Serious: Yes (Other)
  Sender: ROCHE
  Company Number: US-ROCHE-10000015021

PATIENT
  Age: 85 Year
  Sex: Male

DRUGS (14)
  1. ESBRIET [Suspect]
     Active Substance: PIRFENIDONE
     Indication: Idiopathic pulmonary fibrosis
     Dosage: TAKE 1 TABLET BY MOUTH 3 TIMES A DAY WITH MEALS
     Route: 048
  2. ACETAMINOPHEN [Concomitant]
     Active Substance: ACETAMINOPHEN
  3. FLUTICASONE PROPIONATE [Concomitant]
     Active Substance: FLUTICASONE PROPIONATE
  4. ASPIRIN [Concomitant]
     Active Substance: ASPIRIN
  5. LIPITOR [Concomitant]
     Active Substance: ATORVASTATIN CALCIUM
  6. VITAMIN D3 [Concomitant]
     Active Substance: CHOLECALCIFEROL
  7. PLAVIX [Concomitant]
     Active Substance: CLOPIDOGREL BISULFATE
     Route: 048
  8. LEVACECARNINE HYDROCHLORIDE [Concomitant]
     Active Substance: LEVACECARNINE HYDROCHLORIDE
     Route: 048
  9. KEPPRA [Concomitant]
     Active Substance: LEVETIRACETAM
  10. SYNTHROID [Concomitant]
     Active Substance: LEVOTHYROXINE SODIUM
     Route: 048
  11. FISH OIL [Concomitant]
     Active Substance: FISH OIL
  12. DILANTIN [Concomitant]
     Active Substance: PHENYTOIN
  13. FLOMAX [Concomitant]
     Active Substance: TAMSULOSIN HYDROCHLORIDE
  14. SALICYLIC ACID\TRIAMCINOLONE ACETONIDE [Concomitant]
     Active Substance: SALICYLIC ACID\TRIAMCINOLONE ACETONIDE

REACTIONS (8)
  - Cerebrovascular accident [Unknown]
  - Large intestinal obstruction [Unknown]
  - Memory impairment [Unknown]
  - Anxiety [Unknown]
  - Dyspnoea exertional [Unknown]
  - Fatigue [Unknown]
  - Blood alkaline phosphatase increased [Unknown]
  - Drug ineffective [Unknown]

NARRATIVE: CASE EVENT DATE: 20240801
